FAERS Safety Report 9074777 (Version 1)
Quarter: 2013Q1

REPORT INFORMATION
  Report Type: Spontaneous
  Country: US (occurrence: US)
  Receive Date: 20130129
  Receipt Date: 20130129
  Transmission Date: 20140127
  Serious: Yes (Death, Hospitalization)
  Sender: FDA-Public Use
  Company Number: US-009507513-1301USA004846

PATIENT
  Sex: Female

DRUGS (1)
  1. NOXAFIL [Suspect]
     Dosage: 40 MG, TID
     Route: 048

REACTIONS (1)
  - Leukaemia [Fatal]
